FAERS Safety Report 8621448-5 (Version None)
Quarter: 2012Q3

REPORT INFORMATION
  Report Type: 
  Country: None (occurrence: None)
  Receive Date: 20120824
  Receipt Date: 20120815
  Transmission Date: 20120928
  Serious: Yes (Hospitalization)
  Sender: FDA-Public Use
  Company Number: US-ASTRAZENECA-2012SE57670

PATIENT
  Age: 47 Year
  Sex: Female

DRUGS (2)
  1. NEXIUM [Suspect]
     Route: 048
  2. SIX DIFFERENT LAXATIVES [Concomitant]

REACTIONS (5)
  - ANAEMIA [None]
  - ADVERSE EVENT [None]
  - DIABETIC ENTEROPATHY [None]
  - DIABETES MELLITUS [None]
  - MALAISE [None]
